FAERS Safety Report 8511509 (Version 2)
Quarter: 2014Q2

REPORT INFORMATION
  Report Type: Spontaneous
  Country: US (occurrence: US)
  Receive Date: 20120413
  Receipt Date: 20140527
  Transmission Date: 20141212
  Serious: No
  Sender: FDA-Public Use
  Company Number: US-ASTRAZENECA-2011SE65969

PATIENT
  Age: 49 Year
  Sex: Male
  Weight: 79.8 kg

DRUGS (3)
  1. NEXIUM [Suspect]
     Indication: GASTROOESOPHAGEAL REFLUX DISEASE
     Route: 048
     Dates: start: 2004
  2. OMEPRAZOLE [Suspect]
     Route: 048
  3. OTC UNKNOWN MEDICATION [Concomitant]

REACTIONS (10)
  - Nasopharyngitis [Unknown]
  - Throat irritation [Unknown]
  - Pain [Unknown]
  - Regurgitation [Unknown]
  - Sleep disorder due to a general medical condition [Unknown]
  - Gastrooesophageal reflux disease [Unknown]
  - Dysgeusia [Unknown]
  - Malaise [Not Recovered/Not Resolved]
  - Drug effect incomplete [Unknown]
  - Drug dose omission [Unknown]
